FAERS Safety Report 9422895 (Version 2)
Quarter: 2013Q3

REPORT INFORMATION
  Report Type: Report from Study
  Country: US (occurrence: US)
  Receive Date: 20130726
  Receipt Date: 20130904
  Transmission Date: 20140515
  Serious: Yes (Hospitalization, Disabling, Other)
  Sender: FDA-Public Use
  Company Number: US-ABBOTT-13P-163-1123314-00

PATIENT
  Age: 58 Year
  Sex: Male
  Weight: 90.8 kg

DRUGS (11)
  1. HUMIRA [Suspect]
     Indication: RHEUMATOID ARTHRITIS
     Dates: start: 20050701
  2. LISINOPRIL [Concomitant]
     Indication: HYPERTENSION
  3. BAYER ASPIRIN [Concomitant]
     Indication: PROPHYLAXIS
     Route: 048
  4. MULTIVITAMIN [Concomitant]
     Indication: PRODUCT USED FOR UNKNOWN INDICATION
  5. FOLIC ACID [Concomitant]
     Indication: PRODUCT USED FOR UNKNOWN INDICATION
  6. METHOTREXATE [Concomitant]
     Indication: PRODUCT USED FOR UNKNOWN INDICATION
  7. NAPROSYN [Concomitant]
     Indication: SWELLING
  8. NAPROSYN [Concomitant]
     Indication: INFLAMMATION
  9. MEDROL [Concomitant]
     Indication: PRODUCT USED FOR UNKNOWN INDICATION
     Dosage: AS DIRECTED
  10. PRED FORTE [Concomitant]
     Indication: PRODUCT USED FOR UNKNOWN INDICATION
     Dosage: SUSPENSION AS DIRECTED
  11. OCUFLOX [Concomitant]
     Indication: PRODUCT USED FOR UNKNOWN INDICATION
     Dosage: SOLUTION AS DIRECTED

REACTIONS (20)
  - Intervertebral disc protrusion [Recovering/Resolving]
  - Spinal column stenosis [Recovering/Resolving]
  - Sciatica [Recovered/Resolved]
  - Sciatica [Recovering/Resolving]
  - Asthenia [Recovering/Resolving]
  - Arthralgia [Not Recovered/Not Resolved]
  - Joint swelling [Unknown]
  - Arthritis [Unknown]
  - Joint effusion [Unknown]
  - Muscular weakness [Unknown]
  - Dysaesthesia [Unknown]
  - Arthralgia [Unknown]
  - Fatigue [Unknown]
  - Gait disturbance [Unknown]
  - Insomnia [Unknown]
  - Stress [Unknown]
  - Muscular weakness [Unknown]
  - Patellofemoral pain syndrome [Unknown]
  - Malaise [Unknown]
  - Rheumatoid nodule [Unknown]
